FAERS Safety Report 6218210-X (Version None)
Quarter: 2009Q2

REPORT INFORMATION
  Report Type: 
  Country: None (occurrence: None)
  Receive Date: 20090608
  Receipt Date: 20090601
  Transmission Date: 20091009
  Serious: Yes (Hospitalization, Disabling, Other)
  Sender: FDA-Public Use
  Company Number: BR-ASTRAZENECA-2009UW01462

PATIENT
  Age: 1031 Month
  Sex: Female
  Weight: 43 kg

DRUGS (3)
  1. ATACAND HCT [Suspect]
     Indication: HYPERTENSION
     Dosage: 8/12.5 MG
     Route: 048
     Dates: start: 20060101
  2. CARDIZEM [Concomitant]
     Indication: HYPERTENSION
     Route: 048
     Dates: start: 20060101
  3. MAGNESIUM HYDROXIDE TAB [Concomitant]
     Indication: GASTROINTESTINAL DISORDER
     Dates: start: 20050101

REACTIONS (5)
  - FALL [None]
  - FEMUR FRACTURE [None]
  - INSOMNIA [None]
  - UPPER LIMB FRACTURE [None]
  - WEIGHT DECREASED [None]
